FAERS Safety Report 15181396 (Version 1)
Quarter: 2018Q3

REPORT INFORMATION
  Report Type: Report from Study
  Country: RO (occurrence: RO)
  Receive Date: 20180723
  Receipt Date: 20180723
  Transmission Date: 20181010
  Serious: Yes (Hospitalization, Other)
  Sender: FDA-Public Use
  Company Number: RO-GILEAD-2018-0350919

PATIENT
  Age: 70 Year
  Sex: Female

DRUGS (2)
  1. LEDIPASVIR/SOFOSBUVIR [Suspect]
     Active Substance: LEDIPASVIR\SOFOSBUVIR
     Indication: HEPATITIS C
     Dosage: 1 DF, QD
     Route: 048
     Dates: start: 20180122, end: 20180415
  2. LEDIPASVIR/SOFOSBUVIR [Suspect]
     Active Substance: LEDIPASVIR\SOFOSBUVIR
     Indication: HEPATIC CIRRHOSIS

REACTIONS (13)
  - Acute respiratory failure [Unknown]
  - Acute kidney injury [Unknown]
  - Myocardial ischaemia [Unknown]
  - Gallbladder disorder [Unknown]
  - Abdominal distension [Unknown]
  - Oedema peripheral [Unknown]
  - Generalised oedema [Unknown]
  - Chronic hepatic failure [Unknown]
  - Electrolyte imbalance [Unknown]
  - Encephalopathy [Unknown]
  - Thrombocytopenia [Unknown]
  - Anaemia [Unknown]
  - General physical condition abnormal [Unknown]

NARRATIVE: CASE EVENT DATE: 20180623
